FAERS Safety Report 22664351 (Version 1)
Quarter: 2023Q2

REPORT INFORMATION
  Report Type: Spontaneous
  Country: US (occurrence: None)
  Receive Date: 20230630
  Receipt Date: 20230630
  Transmission Date: 20230722
  Serious: Yes (Other)
  Sender: FDA-Public Use
  Company Number: None

PATIENT
  Sex: Female

DRUGS (1)
  1. NUCALA [Suspect]
     Active Substance: MEPOLIZUMAB
     Indication: Asthma
     Dosage: FREQUENCY : MONTHLY;?
     Route: 058

REACTIONS (5)
  - Dyspnoea [None]
  - Urticaria [None]
  - Impaired quality of life [None]
  - Food allergy [None]
  - Seasonal allergy [None]
